FAERS Safety Report 23958682 (Version 1)
Quarter: 2024Q2

REPORT INFORMATION
  Report Type: Spontaneous
  Country: EG (occurrence: EG)
  Receive Date: 20240610
  Receipt Date: 20240610
  Transmission Date: 20240715
  Serious: Yes (Hospitalization, Other)
  Sender: FDA-Public Use
  Company Number: EG-NOVOPROD-1232235

PATIENT
  Age: 552 Month
  Sex: Male
  Weight: 85 kg

DRUGS (6)
  1. NEUROPATEX [Concomitant]
     Indication: Nervous system disorder
     Dosage: UNK (1 TAB MORNING AND 1 TAB AT NIGHT)
     Route: 048
  2. INSULIN HUMAN [Suspect]
     Active Substance: INSULIN HUMAN
     Indication: Type 2 diabetes mellitus
     Dosage: 25 IU, QD (15U MORNING -10U AT NIGHT)
     Route: 058
     Dates: start: 2016
  3. INSULIN HUMAN [Suspect]
     Active Substance: INSULIN HUMAN
     Dosage: 20 IU(DURING HOSPITALIZATION)
     Route: 058
     Dates: start: 20210522
  4. .ALPHA.-LIPOIC ACID [Concomitant]
     Active Substance: .ALPHA.-LIPOIC ACID
     Indication: Nervous system disorder
     Dosage: UNK (1 TAB MORNING AND 1 TAB AT NIGHT)
     Route: 048
  5. DAPAGLIFLOZIN [Concomitant]
     Active Substance: DAPAGLIFLOZIN
     Indication: Type 2 diabetes mellitus
     Dosage: UNK (1 TAB BEFORE BREAKFAST)
     Route: 048
  6. VILDAGLIPTIN [Concomitant]
     Active Substance: VILDAGLIPTIN
     Indication: Type 2 diabetes mellitus
     Dosage: UNK (1 TAB MORNING AND 1 TAB AT NIGHT)
     Route: 048

REACTIONS (7)
  - Cataract [Recovered/Resolved]
  - Retinal haemorrhage [Recovered/Resolved]
  - Glaucoma [Recovered/Resolved]
  - Retinal haemorrhage [Recovered/Resolved]
  - Glaucoma [Recovered/Resolved]
  - Visual impairment [Not Recovered/Not Resolved]
  - Blood glucose increased [Unknown]

NARRATIVE: CASE EVENT DATE: 20210101
